FAERS Safety Report 9616990 (Version 2)
Quarter: 2013Q4

REPORT INFORMATION
  Report Type: Report from Study
  Country: US (occurrence: US)
  Receive Date: 20131011
  Receipt Date: 20131011
  Transmission Date: 20140711
  Serious: Yes (Other)
  Sender: FDA-Public Use
  Company Number: US-ABBVIE-13P-163-1132339-00

PATIENT
  Age: 18 Year
  Sex: Female
  Weight: 51 kg

DRUGS (4)
  1. HUMIRA [Suspect]
     Indication: CROHN^S DISEASE
     Dosage: LOADING DOSE
     Dates: start: 20130807
  2. METHOTREXATE [Concomitant]
     Indication: PRODUCT USED FOR UNKNOWN INDICATION
     Route: 058
     Dates: start: 2008
  3. SPIRONOLACTONE [Concomitant]
     Indication: PRODUCT USED FOR UNKNOWN INDICATION
     Route: 048
  4. BIRTH CONTROL [Concomitant]
     Indication: PRODUCT USED FOR UNKNOWN INDICATION

REACTIONS (2)
  - Hypotension [Recovered/Resolved]
  - Syncope [Recovered/Resolved]
